FAERS Safety Report 5144341-1 (Version None)
Quarter: 2006Q4

REPORT INFORMATION
  Report Type: 
  Country: None (occurrence: None)
  Receive Date: 20061030
  Receipt Date: 20061017
  Transmission Date: 20070319
  Serious: Yes (Hospitalization)
  Sender: FDA-Public Use
  Company Number: US200610003009

PATIENT
  Age: 51 Year
  Sex: Female

DRUGS (9)
  1. HUMULIN N [Suspect]
     Indication: DIABETES MELLITUS
     Dosage: 24 U, EACH MORNING, SEE IMAGE
     Dates: start: 19820101, end: 20060901
  2. HUMULIN N [Suspect]
     Indication: DIABETES MELLITUS
     Dosage: 24 U, EACH MORNING, SEE IMAGE
     Dates: start: 20060101
  3. HUMULIN R [Suspect]
     Indication: DIABETES MELLITUS
     Dosage: 24 U, EACH MORNING, SEE IMAGE
     Dates: start: 19820101, end: 20060901
  4. HUMULIN R [Suspect]
     Indication: DIABETES MELLITUS
     Dosage: 24 U, EACH MORNING, SEE IMAGE
     Dates: start: 20060101
  5. ILETIN [Suspect]
     Indication: DIABETES MELLITUS
     Dates: start: 19550101, end: 19820101
  6. ILETIN [Suspect]
     Dates: start: 19550101, end: 19820101
  7. HUMALOG [Suspect]
     Dosage: 3/D
  8. LANTUS [Concomitant]
  9. NOVOLOG [Concomitant]

REACTIONS (13)
  - BLOOD GLUCOSE INCREASED [None]
  - CONTUSION [None]
  - ENDOMETRIOSIS [None]
  - HERNIA [None]
  - INJECTION SITE BRUISING [None]
  - INJECTION SITE ERYTHEMA [None]
  - INJECTION SITE HAEMORRHAGE [None]
  - INJECTION SITE MASS [None]
  - INJECTION SITE PAIN [None]
  - INJECTION SITE PRURITUS [None]
  - LIPOMA [None]
  - PHARMACEUTICAL PRODUCT COMPLAINT [None]
  - SKIN DISCOLOURATION [None]
